FAERS Safety Report 9124872 (Version 1)
Quarter: 2013Q1

REPORT INFORMATION
  Report Type: Spontaneous
  Country: US (occurrence: US)
  Receive Date: 20130121
  Receipt Date: 20130121
  Transmission Date: 20140127
  Serious: No
  Sender: FDA-Public Use
  Company Number: US-B.I. PHARMACEUTICALS,INC./RIDGEFIELD-2013-BI-00510BP

PATIENT
  Sex: Female

DRUGS (2)
  1. MICARDIS [Suspect]
     Indication: HYPERTENSION
     Dosage: 80 MG
     Route: 048
     Dates: start: 20130105
  2. MICARDIS [Suspect]
     Dosage: 40 MG
     Route: 048
     Dates: start: 20130107, end: 20130107

REACTIONS (2)
  - Dizziness [Not Recovered/Not Resolved]
  - Wrong technique in drug usage process [Recovered/Resolved]
